FAERS Safety Report 14288096 (Version 1)
Quarter: 2017Q4

REPORT INFORMATION
  Report Type: Spontaneous
  Country: CH (occurrence: CH)
  Receive Date: 20171214
  Receipt Date: 20171214
  Transmission Date: 20180321
  Serious: Yes (Death, Life-Threatening, Hospitalization, Other)
  Sender: FDA-Public Use
  Company Number: CH-NAPPMUNDI-GBR-2017-0051439

PATIENT
  Age: 83 Year
  Sex: Female

DRUGS (23)
  1. DAFALGAN [Suspect]
     Active Substance: ACETAMINOPHEN
     Indication: POSTOPERATIVE ANALGESIA
     Dosage: 500 MG, 1-1-1-1
     Route: 048
     Dates: start: 20170930, end: 20171106
  2. LASIX [Suspect]
     Active Substance: FUROSEMIDE
     Indication: HYPERTENSIVE CARDIOMYOPATHY
     Dosage: 20 MG, UNK
     Route: 042
     Dates: start: 20171106, end: 201711
  3. LASIX [Suspect]
     Active Substance: FUROSEMIDE
     Indication: PULMONARY CONGESTION
     Dosage: 40 MG, DAILY
     Route: 042
     Dates: start: 20171101
  4. CHONDROSULF [Concomitant]
     Active Substance: CHONDROITIN SULFATE (CHICKEN)
     Dosage: 800 MG, DAILY
     Dates: start: 20171101
  5. FRAGMIN [Concomitant]
     Active Substance: DALTEPARIN SODIUM
     Dosage: UNK
     Dates: start: 201710
  6. ROCEPHIN [Concomitant]
     Active Substance: CEFTRIAXONE SODIUM
     Indication: SEPSIS
     Dosage: 2 G, DAILY
     Route: 041
     Dates: start: 20171106, end: 20171106
  7. VITAMIN D3 [Concomitant]
     Active Substance: CHOLECALCIFEROL
     Dosage: UNK
     Dates: start: 20171101, end: 20171107
  8. OXYCONTIN [Suspect]
     Active Substance: OXYCODONE HYDROCHLORIDE
     Indication: ARTHRALGIA
     Dosage: 5 MG, BID
     Route: 048
     Dates: start: 20171101, end: 20171108
  9. SPIRIVA [Concomitant]
     Active Substance: TIOTROPIUM BROMIDE MONOHYDRATE
  10. DOSPIR [Concomitant]
     Active Substance: ALBUTEROL SULFATE\IPRATROPIUM BROMIDE
     Dosage: UNK
  11. ASPIRIN CARDIO [Concomitant]
     Active Substance: ASPIRIN
     Dosage: 100 MG, DAILY
     Dates: start: 20171101, end: 20171109
  12. TARGIN [Suspect]
     Active Substance: NALOXONE HYDROCHLORIDE\OXYCODONE HYDROCHLORIDE
     Indication: ARTHRALGIA
     Dosage: 2X5/2.5MG
     Route: 048
     Dates: start: 20170930, end: 20171030
  13. AMIKIN [Suspect]
     Active Substance: AMIKACIN SULFATE
     Indication: SEPSIS
     Dosage: UNK
     Route: 041
     Dates: start: 20171107, end: 20171110
  14. TAZOBAC [Concomitant]
     Active Substance: PIPERACILLIN SODIUM\TAZOBACTAM SODIUM
     Dosage: 4.5 G, Q12H
     Route: 042
     Dates: start: 20171110, end: 20171111
  15. TRITTICO [Suspect]
     Active Substance: TRAZODONE HYDROCHLORIDE
     Indication: PRODUCT USED FOR UNKNOWN INDICATION
     Dosage: 75 MG, PM
     Route: 048
     Dates: start: 201710, end: 20171107
  16. KLACID                             /00984601/ [Suspect]
     Active Substance: CLARITHROMYCIN
     Indication: SEPSIS
     Dosage: UNK
     Route: 041
     Dates: start: 20171108, end: 20171110
  17. CARVEDILOL. [Concomitant]
     Active Substance: CARVEDILOL
     Dosage: 12.5 MG, DAILY
     Dates: start: 20171101
  18. NOVALGIN [Suspect]
     Active Substance: METAMIZOLE SODIUM
     Indication: POSTOPERATIVE ANALGESIA
     Dosage: 500 MG, 1-1-1-1
     Route: 048
     Dates: start: 20170930, end: 20171106
  19. AMLODIPINE [Suspect]
     Active Substance: AMLODIPINE BESYLATE
     Indication: HYPERTENSION
     Dosage: 5 MG, DAILY
     Route: 048
     Dates: start: 201710, end: 20171107
  20. STILNOX [Suspect]
     Active Substance: ZOLPIDEM TARTRATE
     Indication: INSOMNIA
     Dosage: 10 MG, PM
     Route: 048
     Dates: start: 201710, end: 20171107
  21. CEFEPIM SANDOZ [Suspect]
     Active Substance: CEFEPIME HYDROCHLORIDE
     Indication: SEPSIS
     Dosage: UNK
     Route: 041
     Dates: start: 20171107, end: 20171110
  22. CANDESARTAN. [Concomitant]
     Active Substance: CANDESARTAN
     Indication: HYPERTENSION
     Dosage: 16 MG, DAILY
     Route: 048
     Dates: start: 20171101
  23. SYMBICORT [Concomitant]
     Active Substance: BUDESONIDE\FORMOTEROL FUMARATE DIHYDRATE

REACTIONS (10)
  - Cholestatic liver injury [Recovered/Resolved]
  - Encephalopathy [Unknown]
  - Cardiac failure [Fatal]
  - Agranulocytosis [Recovered/Resolved]
  - Epilepsy [Unknown]
  - Acute kidney injury [Recovered/Resolved]
  - Neutropenic sepsis [Recovering/Resolving]
  - Atrial fibrillation [Recovered/Resolved]
  - Respiratory failure [Fatal]
  - Chemotherapeutic drug level increased [Recovered/Resolved]

NARRATIVE: CASE EVENT DATE: 20171106
